FAERS Safety Report 4326775-8 (Version None)
Quarter: 2004Q1

REPORT INFORMATION
  Report Type: 
  Country: None (occurrence: None)
  Receive Date: 20040322
  Receipt Date: 20031219
  Transmission Date: 20041129
  Serious: No
  Sender: FDA-Public Use
  Company Number: US-JNJFOC-20031204638

PATIENT
  Age: 20 Year
  Sex: Female
  Weight: 45.3597 kg

DRUGS (1)
  1. ORTHO TRI-CYCLEN LO [Suspect]
     Indication: MENSTRUATION IRREGULAR
     Dosage: 1 DOSE(S), 1 IN 1 DAY, ORAL
     Route: 048
     Dates: start: 20030901

REACTIONS (4)
  - ACNE [None]
  - MENORRHAGIA [None]
  - PREMENSTRUAL SYNDROME [None]
  - UTERINE SPASM [None]
